FAERS Safety Report 6112960-1 (Version None)
Quarter: 2009Q1

REPORT INFORMATION
  Report Type: 
  Country: None (occurrence: None)
  Receive Date: 20090312
  Receipt Date: 20090312
  Transmission Date: 20090719
  Serious: Yes (Other)
  Sender: FDA-Public Use
  Company Number: A0772761A

PATIENT
  Age: 61 Year
  Sex: Female

DRUGS (1)
  1. ALLI [Suspect]
     Route: 048
     Dates: start: 20080901

REACTIONS (5)
  - ASTHENIA [None]
  - FREQUENT BOWEL MOVEMENTS [None]
  - GASTROENTERITIS VIRAL [None]
  - RECTAL DISCHARGE [None]
  - URINARY TRACT INFECTION [None]
